FAERS Safety Report 6571611-2 (Version None)
Quarter: 2010Q1

REPORT INFORMATION
  Report Type: 
  Country: None (occurrence: None)
  Receive Date: 20100205
  Receipt Date: 20100128
  Transmission Date: 20100710
  Serious: No
  Sender: FDA-Public Use
  Company Number: AU-ASTRAZENECA-2010SE03693

PATIENT
  Age: 16 Year
  Sex: Female

DRUGS (2)
  1. SEROQUEL [Suspect]
     Dosage: 200 - 300 MG/DAY
     Route: 048
  2. SEROQUEL [Suspect]
     Dosage: 900 MG AS A SPLIT DOSE
     Route: 048
     Dates: start: 20091201

REACTIONS (1)
  - NEUTROPENIA [None]
